FAERS Safety Report 13030399 (Version 2)
Quarter: 2017Q4

REPORT INFORMATION
  Report Type: Spontaneous
  Country: US (occurrence: US)
  Receive Date: 20161215
  Receipt Date: 20171221
  Transmission Date: 20180320
  Serious: No
  Sender: FDA-Public Use
  Company Number: US-TEVA-702924USA

PATIENT
  Sex: Male

DRUGS (1)
  1. DORZOLAMIDE [Suspect]
     Active Substance: DORZOLAMIDE
     Indication: PRODUCT USED FOR UNKNOWN INDICATION
     Dosage: 2 GTT DAILY;
     Route: 047

REACTIONS (5)
  - Eye irritation [Unknown]
  - Throat irritation [Unknown]
  - Chest pain [Unknown]
  - Dry eye [Unknown]
  - Eye pruritus [Unknown]
